FAERS Safety Report 8765580 (Version 2)
Quarter: 2012Q4

REPORT INFORMATION
  Report Type: Report from Study
  Country: DE (occurrence: DE)
  Receive Date: 20120903
  Receipt Date: 20120917
  Transmission Date: 20130627
  Serious: Yes (Death)
  Sender: FDA-Public Use
  Company Number: PHHY2012DE075591

PATIENT
  Age: 76 Year
  Sex: Male
  Weight: 82 kg

DRUGS (6)
  1. ZOLEDRONATE [Suspect]
     Indication: BONE DISORDER
     Dosage: 4 mg, UNK
     Dates: start: 20110413, end: 20120418
  2. DEXAMETHASONE [Concomitant]
     Dosage: 0.5 mg, UNK
     Dates: start: 20120321, end: 20120418
  3. BICALUTAMIDE [Concomitant]
     Dosage: 150 mg, UNK
     Dates: start: 20110825, end: 20111124
  4. FLUTAMIDE [Concomitant]
     Dosage: 250 mg, UNK
     Dates: start: 20110222
  5. CYPROTERONE [Concomitant]
     Dosage: 100 mg, UNK
     Route: 048
     Dates: start: 20090430, end: 20090519
  6. ELIGARD [Concomitant]
     Dosage: 22.5 mg, UNK
     Dates: start: 20090519

REACTIONS (3)
  - Coronary artery disease [Fatal]
  - Metastases to bone marrow [Fatal]
  - Multi-organ failure [Fatal]
